FAERS Safety Report 7802520-6 (Version None)
Quarter: 2011Q4

REPORT INFORMATION
  Report Type: 
  Country: None (occurrence: None)
  Receive Date: 20111007
  Receipt Date: 20111003
  Transmission Date: 20120403
  Serious: Yes (Hospitalization)
  Sender: FDA-Public Use
  Company Number: US-GLAXOSMITHKLINE-B0753432A

PATIENT
  Age: 50 Year
  Sex: Female

DRUGS (1)
  1. AVANDIA [Suspect]
     Indication: DIABETES MELLITUS
     Dosage: 8MG PER DAY
     Route: 048
     Dates: start: 20070627, end: 20071114

REACTIONS (5)
  - HYPERTENSION [None]
  - FATIGUE [None]
  - CEREBROVASCULAR ACCIDENT [None]
  - AMNESIA [None]
  - HYPOAESTHESIA [None]
